FAERS Safety Report 25074874 (Version 2)
Quarter: 2025Q3

REPORT INFORMATION
  Report Type: Spontaneous
  Country: EU (occurrence: EU)
  Receive Date: 20250313
  Receipt Date: 20250813
  Transmission Date: 20251020
  Serious: Yes (Life-Threatening, Other)
  Sender: PFIZER
  Company Number: None

PATIENT
  Age: 66 Year
  Sex: Female
  Weight: 66 kg

DRUGS (4)
  1. IBRANCE [Suspect]
     Active Substance: PALBOCICLIB
     Indication: Breast cancer metastatic
     Dosage: CYCLE OF 28 DAYS
     Route: 048
     Dates: start: 201907, end: 202305
  2. IBRANCE [Suspect]
     Active Substance: PALBOCICLIB
     Dosage: CYCLE OF 28 DAYS
     Route: 048
     Dates: start: 202306, end: 202402
  3. IBRANCE [Suspect]
     Active Substance: PALBOCICLIB
     Dosage: CYCLE OF 28 DAYS
     Route: 048
     Dates: start: 202403, end: 202501
  4. LETROZOLE [Concomitant]
     Active Substance: LETROZOLE
     Dates: start: 201907

REACTIONS (3)
  - Progressive multifocal leukoencephalopathy [Recovered/Resolved]
  - Leukopenia [Recovered/Resolved]
  - Asthenia [Recovering/Resolving]

NARRATIVE: CASE EVENT DATE: 20230601
